FAERS Safety Report 12737727 (Version 1)
Quarter: 2016Q3

REPORT INFORMATION
  Report Type: Spontaneous
  Country: CN (occurrence: CN)
  Receive Date: 20160913
  Receipt Date: 20160913
  Transmission Date: 20161109
  Serious: Yes (Other)
  Sender: FDA-Public Use
  Company Number: CN-ASTRAZENECA-2016SE96230

PATIENT
  Age: 26298 Day
  Sex: Male
  Weight: 72 kg

DRUGS (5)
  1. METHYLPREDNISOLONE SODIUM SUCCINATE. [Suspect]
     Active Substance: METHYLPREDNISOLONE SODIUM SUCCINATE
     Indication: WHEEZING
     Route: 042
     Dates: start: 20160223, end: 20160229
  2. DEXAMETHASONE. [Suspect]
     Active Substance: DEXAMETHASONE
     Indication: LUNG NEOPLASM MALIGNANT
     Route: 048
     Dates: start: 20160224, end: 20160226
  3. BUDESONIDE. [Suspect]
     Active Substance: BUDESONIDE
     Indication: WHEEZING
     Route: 055
     Dates: start: 20160223, end: 20160229
  4. COMPOUND IPRATROPIUM BROMIDE [Concomitant]
     Indication: WHEEZING
     Route: 055
     Dates: start: 20160223, end: 20160229
  5. CHLORIDE [Concomitant]
     Active Substance: CHLORIDE ION
     Indication: MEDICATION DILUTION
     Route: 042
     Dates: start: 20160223, end: 20160229

REACTIONS (1)
  - Leukoplakia oral [Not Recovered/Not Resolved]

NARRATIVE: CASE EVENT DATE: 20160229
